FAERS Safety Report 9928138 (Version 1)
Quarter: 2014Q1

REPORT INFORMATION
  Report Type: Spontaneous
  Country: GB (occurrence: GB)
  Receive Date: 20140227
  Receipt Date: 20140227
  Transmission Date: 20141002
  Serious: Yes (Other)
  Sender: FDA-Public Use
  Company Number: GB-ASTRAZENECA-2014SE12913

PATIENT
  Age: 45 Year
  Sex: Male

DRUGS (13)
  1. QUETIAPINE [Suspect]
     Indication: PSYCHOTIC DISORDER
     Route: 048
     Dates: start: 20130129, end: 20140127
  2. AMITRIPTYLINE [Concomitant]
  3. CETIRIZINE [Concomitant]
  4. DIAZEPAM [Concomitant]
  5. DULOXETINE [Concomitant]
  6. LANSOPRAZOLE [Concomitant]
  7. OXYCONTIN [Concomitant]
  8. PRAMIPEXOLE [Concomitant]
  9. PREGABALIN [Concomitant]
  10. QUININE SULFATE [Concomitant]
  11. SENNA [Concomitant]
  12. SOLIFENACIN [Concomitant]
  13. ZOPICLONE [Concomitant]

REACTIONS (2)
  - Transient ischaemic attack [Recovering/Resolving]
  - Asthenia [Not Recovered/Not Resolved]
